FAERS Safety Report 5188360-8 (Version None)
Quarter: 2006Q4

REPORT INFORMATION
  Report Type: 
  Country: None (occurrence: None)
  Receive Date: 20061221
  Receipt Date: 20061204
  Transmission Date: 20070319
  Serious: Yes (Other)
  Sender: FDA-Public Use
  Company Number: NL-BRISTOL-MYERS SQUIBB COMPANY-13610530

PATIENT
  Age: 33 Year
  Sex: Male

DRUGS (3)
  1. EFAVIRENZ [Suspect]
     Indication: HIV INFECTION
  2. LAMIVUDINE [Suspect]
  3. ZIDOVUDINE [Suspect]

REACTIONS (1)
  - VASCULITIS CEREBRAL [None]
